FAERS Safety Report 9675852 (Version 1)
Quarter: 2013Q4

REPORT INFORMATION
  Report Type: Spontaneous
  Country: US (occurrence: US)
  Receive Date: 20131107
  Receipt Date: 20131107
  Transmission Date: 20140711
  Serious: Yes (Other)
  Sender: FDA-Public Use
  Company Number: US-BAYER-2013-133840

PATIENT
  Age: 52 Year
  Sex: Female

DRUGS (1)
  1. CLIMARA PRO [Suspect]
     Indication: HOT FLUSH
     Dosage: ONE PATCH WEEKLY
     Route: 062
     Dates: start: 20130707

REACTIONS (5)
  - Genital haemorrhage [Recovered/Resolved]
  - Amenorrhoea [None]
  - Genital haemorrhage [Recovered/Resolved]
  - Product adhesion issue [None]
  - Glaucoma [None]
